FAERS Safety Report 10016136 (Version 4)
Quarter: 2015Q2

REPORT INFORMATION
  Report Type: Spontaneous
  Country: US (occurrence: US)
  Receive Date: 20140317
  Receipt Date: 20150612
  Transmission Date: 20150821
  Serious: Yes (Hospitalization, Disabling, Other)
  Sender: FDA-Public Use
  Company Number: US-SANOFI-AVENTIS-2012SA003223

PATIENT
  Age: 69 Year
  Sex: Male

DRUGS (14)
  1. PLAVIX [Suspect]
     Active Substance: CLOPIDOGREL BISULFATE
     Indication: PERIPHERAL ARTERIAL OCCLUSIVE DISEASE
     Route: 065
     Dates: start: 20080201, end: 20110316
  2. PLAVIX [Suspect]
     Active Substance: CLOPIDOGREL BISULFATE
     Indication: STENT PLACEMENT
     Route: 065
     Dates: start: 20080201, end: 20110316
  3. IBUPROFEN. [Concomitant]
     Active Substance: IBUPROFEN
  4. METOPROLOL [Concomitant]
     Active Substance: METOPROLOL
  5. ASPIRIN. [Suspect]
     Active Substance: ASPIRIN
     Route: 065
  6. ATENOLOL. [Concomitant]
     Active Substance: ATENOLOL
  7. CRESTOR [Concomitant]
     Active Substance: ROSUVASTATIN CALCIUM
  8. PLAVIX [Suspect]
     Active Substance: CLOPIDOGREL BISULFATE
     Indication: MYOCARDIAL INFARCTION
     Route: 065
     Dates: start: 20080201, end: 20110316
  9. PROTONIX [Concomitant]
     Active Substance: PANTOPRAZOLE SODIUM
  10. ZETIA [Concomitant]
     Active Substance: EZETIMIBE
  11. REGLAN [Concomitant]
     Active Substance: METOCLOPRAMIDE HYDROCHLORIDE
  12. NITROGLYCERINE [Concomitant]
     Active Substance: NITROGLYCERIN
  13. ZANTAC [Concomitant]
     Active Substance: RANITIDINE HYDROCHLORIDE
     Indication: GASTROOESOPHAGEAL REFLUX DISEASE
  14. PLAVIX [Suspect]
     Active Substance: CLOPIDOGREL BISULFATE
     Indication: ACUTE CORONARY SYNDROME
     Route: 065
     Dates: start: 20080201, end: 20110316

REACTIONS (15)
  - Dyspnoea [Unknown]
  - Abdominal discomfort [Unknown]
  - Deformity [Not Recovered/Not Resolved]
  - Haemorrhagic anaemia [Unknown]
  - Fatigue [Unknown]
  - Loss of employment [Not Recovered/Not Resolved]
  - Social problem [Not Recovered/Not Resolved]
  - Pain [Not Recovered/Not Resolved]
  - Anhedonia [Not Recovered/Not Resolved]
  - Gastrointestinal haemorrhage [Unknown]
  - Injury [Not Recovered/Not Resolved]
  - Physical disability [Not Recovered/Not Resolved]
  - Tension [Not Recovered/Not Resolved]
  - Economic problem [Not Recovered/Not Resolved]
  - Psychological trauma [Not Recovered/Not Resolved]

NARRATIVE: CASE EVENT DATE: 20090502
